FAERS Safety Report 16249011 (Version 1)
Quarter: 2019Q2

REPORT INFORMATION
  Report Type: Spontaneous
  Country: US (occurrence: US)
  Receive Date: 20190429
  Receipt Date: 20190429
  Transmission Date: 20190711
  Serious: Yes (Hospitalization, Other)
  Sender: FDA-Public Use
  Company Number: US-GLAXOSMITHKLINE-US2019GSK075604

PATIENT
  Age: 38 Year
  Sex: Male

DRUGS (2)
  1. TUMS [Suspect]
     Active Substance: CALCIUM CARBONATE
     Indication: PRODUCT USED FOR UNKNOWN INDICATION
     Dosage: UNK
  2. TYLENOL [Concomitant]
     Active Substance: ACETAMINOPHEN
     Indication: PRODUCT USED FOR UNKNOWN INDICATION
     Dosage: UNK

REACTIONS (28)
  - Hypercalcaemia [Unknown]
  - Metabolic alkalosis [Unknown]
  - Pain in extremity [Unknown]
  - Weight decreased [Unknown]
  - Abdominal pain [Recovered/Resolved]
  - Asthenia [Unknown]
  - Headache [Unknown]
  - Electrocardiogram T wave abnormal [Unknown]
  - Hypertension [Unknown]
  - Milk-alkali syndrome [Unknown]
  - Mental status changes [Recovered/Resolved]
  - Pyrexia [Recovered/Resolved]
  - Muscle spasms [Unknown]
  - Electrolyte imbalance [Unknown]
  - Myalgia [Unknown]
  - Fatigue [Unknown]
  - Emotional distress [Unknown]
  - Abdominal tenderness [Unknown]
  - Constipation [Unknown]
  - Extra dose administered [Unknown]
  - Nausea [Recovered/Resolved]
  - Vomiting [Recovered/Resolved]
  - Diarrhoea [Recovered/Resolved]
  - Hypophagia [Unknown]
  - Tremor [Unknown]
  - Slow response to stimuli [Unknown]
  - Renal failure [Unknown]
  - Mucosal dryness [Unknown]
